FAERS Safety Report 5738008-6 (Version None)
Quarter: 2008Q2

REPORT INFORMATION
  Report Type: 
  Country: None (occurrence: None)
  Receive Date: 20080514
  Receipt Date: 20080511
  Transmission Date: 20081010
  Serious: Yes (Other)
  Sender: FDA-Public Use
  Company Number: AU-GILEAD-2008-0016432

PATIENT
  Sex: Female
  Weight: 40 kg

DRUGS (2)
  1. TRUVADA [Suspect]
     Indication: HIV INFECTION
  2. KALETRA [Suspect]
     Indication: HIV INFECTION

REACTIONS (3)
  - APHASIA [None]
  - PARALYSIS [None]
  - TONGUE PARALYSIS [None]
